FAERS Safety Report 16384084 (Version 1)
Quarter: 2019Q2

REPORT INFORMATION
  Report Type: Spontaneous
  Country: ES (occurrence: ES)
  Receive Date: 20190603
  Receipt Date: 20190603
  Transmission Date: 20190711
  Serious: Yes (Death, Hospitalization, Other)
  Sender: FDA-Public Use
  Company Number: ES-AXELLIA-002495

PATIENT
  Age: 56 Year
  Sex: Female

DRUGS (9)
  1. AMPHOTERICIN B. [Suspect]
     Active Substance: AMPHOTERICIN B
     Indication: ASPERGILLUS INFECTION
     Dosage: UNK
     Route: 055
  2. CLAVULANATE POTASSIUM/CLAVULANIC ACID [Concomitant]
     Dosage: UNK
     Route: 065
  3. CASPOFUNGIN [Suspect]
     Active Substance: CASPOFUNGIN
     Indication: ASPERGILLUS INFECTION
     Dosage: 50 MG, UNK (SINCE SECOND DAY)
  4. VORICONAZOLE. [Suspect]
     Active Substance: VORICONAZOLE
     Indication: ASPERGILLUS INFECTION
     Dosage: 6 MG/KG, BID,ALSO TAKEN 4MG/KG
     Route: 042
  5. SIMVASTATIN. [Concomitant]
     Active Substance: SIMVASTATIN
     Indication: DYSLIPIDAEMIA
     Dosage: 40 MG, DAILY
  6. AMOXICILLIN. [Concomitant]
     Active Substance: AMOXICILLIN
     Dosage: UNK
     Route: 065
  7. CASPOFUNGIN [Suspect]
     Active Substance: CASPOFUNGIN
     Indication: ASPERGILLUS INFECTION
     Dosage: 70 MG(1ST DAY),ALSO TAKEN 50 MG(SINCE 2ND DAY)
  8. AMPHOTERICIN B/LIPOSOME [Suspect]
     Active Substance: AMPHOTERICIN B
     Indication: ASPERGILLUS INFECTION
     Route: 055
  9. VORICONAZOLE. [Suspect]
     Active Substance: VORICONAZOLE
     Indication: ASPERGILLUS INFECTION
     Dosage: 4 MG/KG, BID
     Route: 042

REACTIONS (3)
  - Drug ineffective [Fatal]
  - Disease progression [Fatal]
  - Bronchopulmonary aspergillosis [Fatal]
